FAERS Safety Report 9329333 (Version 3)
Quarter: 2014Q2

REPORT INFORMATION
  Report Type: Spontaneous
  Country: US (occurrence: US)
  Receive Date: 20130604
  Receipt Date: 20140524
  Transmission Date: 20141212
  Serious: Yes (Other)
  Sender: FDA-Public Use
  Company Number: US-SANOFI-AVENTIS-2013SA026277

PATIENT
  Age: 58 Year
  Sex: Female
  Weight: 68.03 kg

DRUGS (2)
  1. LANTUS [Suspect]
     Indication: TYPE 2 DIABETES MELLITUS
     Dosage: 14 UNITS, NEXT NIGHT USED 5 UNITS.?THERAPY DATES-SINCE MANY YEARS DOSE:34 UNIT(S)
     Route: 051
  2. HUMULIN [Concomitant]
     Dosage: DOSE -SLIDING SCALE
     Dates: start: 201210

REACTIONS (7)
  - Hypoglycaemic coma [Unknown]
  - Dysphagia [Unknown]
  - Hypoglycaemic seizure [Unknown]
  - Hypoglycaemia [Unknown]
  - Blood glucose increased [Unknown]
  - Blood glucose decreased [Unknown]
  - Unevaluable event [Unknown]
